FAERS Safety Report 5351181-7 (Version None)
Quarter: 2007Q2

REPORT INFORMATION
  Report Type: 
  Country: None (occurrence: None)
  Receive Date: 20070608
  Receipt Date: 20070528
  Transmission Date: 20071010
  Serious: Yes (Hospitalization, Other)
  Sender: FDA-Public Use
  Company Number: IE-PFIZER INC-2007038226

PATIENT
  Age: 34 Year
  Sex: Female

DRUGS (2)
  1. CHAMPIX [Suspect]
     Route: 048
  2. CONTRACEPTIVE, UNSPECIFIED [Concomitant]
     Route: 048

REACTIONS (6)
  - CHILLS [None]
  - DYSARTHRIA [None]
  - LIMB DISCOMFORT [None]
  - NAUSEA [None]
  - PARKINSONISM [None]
  - PRESYNCOPE [None]
